FAERS Safety Report 9506497 (Version 1)
Quarter: 2013Q3

REPORT INFORMATION
  Report Type: Spontaneous
  Country: US (occurrence: None)
  Receive Date: 20130905
  Receipt Date: 20130905
  Transmission Date: 20140515
  Serious: Yes (Hospitalization)
  Sender: FDA-Public Use
  Company Number: None

PATIENT
  Age: 94 Year
  Sex: Female
  Weight: 59 kg

DRUGS (7)
  1. WARFARIN UNKNOWN UNKNOWN [Suspect]
     Indication: ATRIAL FIBRILLATION
     Dosage: 3.5 MG QD ORAL
     Route: 048
  2. TRIAMTERENE/HCTZ [Concomitant]
  3. DILTIAZEM [Concomitant]
  4. ATORVASTATIN [Concomitant]
  5. SOTALOL [Concomitant]
  6. ASPIRIN [Concomitant]
  7. ACETAMINOPHEN [Concomitant]

REACTIONS (4)
  - Fall [None]
  - Contusion [None]
  - Laceration [None]
  - Cerebral haemorrhage [None]
